FAERS Safety Report 12269578 (Version 2)
Quarter: 2016Q2

REPORT INFORMATION
  Report Type: Spontaneous
  Country: JP (occurrence: JP)
  Receive Date: 20160414
  Receipt Date: 20160422
  Transmission Date: 20160815
  Serious: Yes (Other)
  Sender: FDA-Public Use
  Company Number: JP-ACTAVIS-2016-07446

PATIENT
  Age: 27 Year
  Sex: Male

DRUGS (1)
  1. HYDROCORTISONE (UNKNOWN) [Suspect]
     Active Substance: HYDROCORTISONE
     Indication: ADRENAL INSUFFICIENCY
     Dosage: 200 MG, DAILY
     Route: 065

REACTIONS (1)
  - Diabetes insipidus [Unknown]
